FAERS Safety Report 10389408 (Version 1)
Quarter: 2014Q3

REPORT INFORMATION
  Report Type: Spontaneous
  Country: US (occurrence: US)
  Receive Date: 20140818
  Receipt Date: 20140818
  Transmission Date: 20150326
  Serious: No
  Sender: FDA-Public Use
  Company Number: US-BIOGENIDEC-2014BI081363

PATIENT
  Age: 60 Year
  Sex: Male

DRUGS (6)
  1. CARBATROL [Concomitant]
     Active Substance: CARBAMAZEPINE
     Indication: TRIGEMINAL NEURALGIA
     Route: 048
  2. GABAPENTIN. [Concomitant]
     Active Substance: GABAPENTIN
     Indication: TEMPOROMANDIBULAR JOINT SYNDROME
  3. AVONEX [Suspect]
     Active Substance: INTERFERON BETA-1A
     Indication: MULTIPLE SCLEROSIS
     Route: 030
     Dates: start: 20140802
  4. CARBATROL [Concomitant]
     Active Substance: CARBAMAZEPINE
     Indication: TEMPOROMANDIBULAR JOINT SYNDROME
     Route: 048
  5. AVONEX [Suspect]
     Active Substance: INTERFERON BETA-1A
     Indication: MULTIPLE SCLEROSIS
     Route: 030
     Dates: start: 20110701, end: 201307
  6. GABAPENTIN. [Concomitant]
     Active Substance: GABAPENTIN
     Indication: TRIGEMINAL NEURALGIA

REACTIONS (4)
  - Multiple sclerosis [Unknown]
  - Injection site pain [Recovered/Resolved]
  - Visual impairment [Not Recovered/Not Resolved]
  - Anxiety [Unknown]

NARRATIVE: CASE EVENT DATE: 2013
